FAERS Safety Report 5649994-7 (Version None)
Quarter: 2008Q1

REPORT INFORMATION
  Report Type: 
  Country: None (occurrence: None)
  Receive Date: 20080131
  Receipt Date: 20071127
  Transmission Date: 20080703
  Serious: No
  Sender: FDA-Public Use
  Company Number: 2006PV015289

PATIENT
  Age: 75 Year
  Sex: Female
  Weight: 79.4 kg

DRUGS (11)
  1. EXENATIDE(EXENATIDE) PEN,DISPOSABLE [Suspect]
     Indication: TYPE 2 DIABETES MELLITUS
     Dosage: 5 UG, 2/D, SUBCUTANEOUS ; 5 UG, 2/D, SUBCUTANEOUS
     Route: 058
     Dates: start: 20060302, end: 20060414
  2. EXENATIDE(EXENATIDE) PEN,DISPOSABLE [Suspect]
     Indication: TYPE 2 DIABETES MELLITUS
     Dosage: 5 UG, 2/D, SUBCUTANEOUS ; 5 UG, 2/D, SUBCUTANEOUS
     Route: 058
     Dates: start: 20060608
  3. AMARYL TABLET [Concomitant]
  4. AVANDIA [Concomitant]
  5. VITAMINS [Concomitant]
  6. CALCIUM [Concomitant]
  7. VITAMIN D [Concomitant]
  8. MAGNESIUM [Concomitant]
  9. EYE PILL WITH COPPER [Concomitant]
  10. ZINC [Concomitant]
  11. GINGER [Concomitant]

REACTIONS (7)
  - BLOOD GLUCOSE INCREASED [None]
  - CHROMATOPSIA [None]
  - DIZZINESS [None]
  - FEELING ABNORMAL [None]
  - LYMPH NODE PAIN [None]
  - NAUSEA [None]
  - VOMITING [None]
